FAERS Safety Report 20170714 (Version 1)
Quarter: 2021Q4

REPORT INFORMATION
  Report Type: Report from Study
  Country: BR (occurrence: BR)
  Receive Date: 20211210
  Receipt Date: 20211210
  Transmission Date: 20220303
  Serious: Yes (Death, Other)
  Sender: FDA-Public Use
  Company Number: BR-TAKEDA-2021TUS078322

PATIENT
  Sex: Male

DRUGS (2)
  1. HUMAN IMMUNOGLOBULIN G\HYALURONIDASE RECOMBINANT HUMAN [Suspect]
     Active Substance: HUMAN IMMUNOGLOBULIN G\HYALURONIDASE RECOMBINANT HUMAN
     Indication: Primary immunodeficiency syndrome
     Dosage: 200 MILLILITER, MONTHLY
     Route: 058
     Dates: start: 20210726
  2. Fungicide [Concomitant]
     Indication: Aspergillus infection

REACTIONS (3)
  - Pulmonary embolism [Fatal]
  - Fatigue [Unknown]
  - Liver disorder [Unknown]
